FAERS Safety Report 7638396-X (Version None)
Quarter: 2011Q3

REPORT INFORMATION
  Report Type: 
  Country: None (occurrence: None)
  Receive Date: 20110727
  Receipt Date: 20110712
  Transmission Date: 20111222
  Serious: Yes (Other)
  Sender: FDA-Public Use
  Company Number: US-JNJFOC-20110605981

PATIENT
  Sex: Female

DRUGS (1)
  1. EXTRA STRENGTH TYLENOL PM [Suspect]
     Indication: HEADACHE
     Dosage: 2-4 TABLETS A DAY
     Route: 048
     Dates: start: 20090101

REACTIONS (2)
  - DEPENDENCE [None]
  - INCORRECT DOSE ADMINISTERED [None]
